FAERS Safety Report 8579359-X (Version None)
Quarter: 2012Q3

REPORT INFORMATION
  Report Type: 
  Country: None (occurrence: None)
  Receive Date: 20120808
  Receipt Date: 20120719
  Transmission Date: 20120928
  Serious: Yes (Other)
  Sender: FDA-Public Use
  Company Number: CN-BAXTER-2012BAX012353

PATIENT
  Sex: Female
  Weight: 60 kg

DRUGS (1)
  1. MANNITOL [Suspect]
     Dosage: 250 ML
     Route: 041
     Dates: start: 20101026, end: 20101026

REACTIONS (2)
  - CHILLS [None]
  - ARRHYTHMIA [None]
